FAERS Safety Report 5002322-2 (Version None)
Quarter: 2006Q2

REPORT INFORMATION
  Report Type: 
  Country: None (occurrence: None)
  Receive Date: 20060512
  Receipt Date: 20060428
  Transmission Date: 20061013
  Serious: Yes (Hospitalization)
  Sender: FDA-Public Use
  Company Number: GB200602004044

PATIENT
  Age: 6 Hour
  Sex: Female
  Weight: 3.2 kg

DRUGS (1)
  1. FLUOXETINE(FLUOXETINE HYDROCHLORIDE UNKNOWN FORMULATION) UNKNOWN [Suspect]
     Dosage: TRANSPLACENTAL
     Route: 064

REACTIONS (6)
  - DRUG EXPOSURE DURING PREGNANCY [None]
  - DRUG WITHDRAWAL SYNDROME NEONATAL [None]
  - FEEDING DISORDER NEONATAL [None]
  - HYPERTONIA NEONATAL [None]
  - SNEEZING [None]
  - VOMITING NEONATAL [None]
